FAERS Safety Report 18119619 (Version 1)
Quarter: 2020Q3

REPORT INFORMATION
  Report Type: Spontaneous
  Country: US (occurrence: US)
  Receive Date: 20200806
  Receipt Date: 20200806
  Transmission Date: 20201103
  Serious: No
  Sender: FDA-Public Use
  Company Number: US-BAYER-2020-153237

PATIENT
  Age: 47 Year
  Sex: Female

DRUGS (1)
  1. MIRENA [Suspect]
     Active Substance: LEVONORGESTREL
     Indication: MENORRHAGIA
     Dosage: 20 ?G PER DAY CONTINUOUSLY
     Route: 015
     Dates: start: 201901, end: 20200722

REACTIONS (3)
  - Device expulsion [Recovered/Resolved]
  - Medical device pain [Not Recovered/Not Resolved]
  - Uterine contractions abnormal [None]

NARRATIVE: CASE EVENT DATE: 202006
